FAERS Safety Report 9411888 (Version 1)
Quarter: 2013Q3

REPORT INFORMATION
  Report Type: Spontaneous
  Country: US (occurrence: None)
  Receive Date: 20130719
  Receipt Date: 20130719
  Transmission Date: 20140515
  Serious: Yes (Other)
  Sender: FDA-Public Use
  Company Number: None

PATIENT
  Age: 22 Year
  Sex: Male

DRUGS (1)
  1. ENBREL 50 MG [Suspect]
     Indication: RHEUMATOID ARTHRITIS
     Dosage: 50 MG QW SQ
     Route: 058
     Dates: start: 201304

REACTIONS (2)
  - Central nervous system lesion [None]
  - Blindness unilateral [None]
